FAERS Safety Report 6932547-8 (Version None)
Quarter: 2010Q3

REPORT INFORMATION
  Report Type: 
  Country: None (occurrence: None)
  Receive Date: 20100817
  Receipt Date: 20100810
  Transmission Date: 20110219
  Serious: Yes (Death, Hospitalization)
  Sender: FDA-Public Use
  Company Number: 2010US001814

PATIENT
  Age: 67 Year
  Sex: Male

DRUGS (18)
  1. PROGRAF [Suspect]
     Indication: LUNG TRANSPLANT
     Dosage: 6.5 MG, BID, ORAL
     Route: 048
     Dates: start: 20090104
  2. VALCYTE (VALGANCICLOVIR HYDROCHLORIDE) TABLET [Concomitant]
  3. CELLCEPT [Concomitant]
  4. GANCICLOVIR (GANCICLOVIR) CAPSULE [Concomitant]
  5. MUCOMYST (ACETYLCYSTEINE) INHALATION [Concomitant]
  6. NOVOLOG [Concomitant]
  7. FLUDROCORTISONE (FLUDROCORTISONE) TABLET [Concomitant]
  8. PREDNISONE TAB [Concomitant]
  9. BACTRIM DS [Concomitant]
  10. NYSTATIN [Concomitant]
  11. METOPROLOL TARTRATE [Concomitant]
  12. DIGOXIN [Concomitant]
  13. PRILOSEC (OMEPRAZOLE) CAPSULE [Concomitant]
  14. MULTIVITAMINS, PLAIN ORAL DRUG UNSPECIFIED FORM [Concomitant]
  15. OSCAL 500 (CALCIUM CARBONATE) TABLET [Concomitant]
  16. MAGNESIUM OXIDE (MAGNESIUM OXIDE) TABLET [Concomitant]
  17. ALBUTEROL [Concomitant]
  18. NORCO (HYDROCODONE BITARTRATE, PARACETAMOL) TABLET [Concomitant]

REACTIONS (22)
  - ANGIOPATHY [None]
  - ASCITES [None]
  - ASTHENIA [None]
  - CARDIOGENIC SHOCK [None]
  - ENCEPHALOPATHY [None]
  - GANGRENE [None]
  - H1N1 INFLUENZA [None]
  - HEADACHE [None]
  - HEPATIC ISCHAEMIA [None]
  - HYPOTENSION [None]
  - INFLUENZA A VIRUS TEST POSITIVE [None]
  - LEUKOCYTOSIS [None]
  - METABOLIC ACIDOSIS [None]
  - MULTI-ORGAN FAILURE [None]
  - NASAL DISORDER [None]
  - NAUSEA [None]
  - PERIPHERAL ISCHAEMIA [None]
  - PERITONITIS BACTERIAL [None]
  - RENAL FAILURE ACUTE [None]
  - SEPSIS [None]
  - SMALL INTESTINAL PERFORATION [None]
  - SUPRAVENTRICULAR TACHYCARDIA [None]
